FAERS Safety Report 23437409 (Version 1)
Quarter: 2024Q1

REPORT INFORMATION
  Report Type: Spontaneous
  Country: JP (occurrence: JP)
  Receive Date: 20240124
  Receipt Date: 20240124
  Transmission Date: 20240410
  Serious: Yes (Other)
  Sender: FDA-Public Use
  Company Number: JP-002147023-NVSJ2023JP016738

PATIENT
  Age: 84 Year
  Sex: Female

DRUGS (8)
  1. NEORAL [Suspect]
     Active Substance: CYCLOSPORINE
     Indication: Still^s disease
     Dosage: 25 MG, BID
     Route: 048
     Dates: start: 20210430, end: 20210511
  2. SULFASALAZINE [Concomitant]
     Active Substance: SULFASALAZINE
     Indication: Still^s disease
     Dosage: UNK
     Route: 065
  3. PREDNISOLONE [Concomitant]
     Active Substance: PREDNISOLONE
     Indication: Still^s disease
     Dosage: 20 MG
     Route: 065
  4. PREDNISOLONE [Concomitant]
     Active Substance: PREDNISOLONE
     Dosage: 15 MG
     Route: 065
     Dates: start: 20200714
  5. PREDNISOLONE [Concomitant]
     Active Substance: PREDNISOLONE
     Dosage: 25 MG,FROM 30 APR
     Route: 065
  6. METHYLPREDNISOLONE [Concomitant]
     Active Substance: METHYLPREDNISOLONE
     Indication: Still^s disease
     Dosage: UNK
     Route: 065
  7. IGURATIMOD [Concomitant]
     Active Substance: IGURATIMOD
     Indication: Arthritis
     Dosage: 25 MG
     Route: 065
     Dates: start: 20200924
  8. IGURATIMOD [Concomitant]
     Active Substance: IGURATIMOD
     Dosage: 50 MG
     Route: 065
     Dates: start: 20201126

REACTIONS (4)
  - Renal impairment [Recovering/Resolving]
  - Hypersensitivity [Unknown]
  - Infection [Unknown]
  - Off label use [Unknown]

NARRATIVE: CASE EVENT DATE: 20210510
